FAERS Safety Report 7961259-7 (Version None)
Quarter: 2011Q4

REPORT INFORMATION
  Report Type: 
  Country: None (occurrence: None)
  Receive Date: 20111202
  Receipt Date: 20111130
  Transmission Date: 20120403
  Serious: Yes (Disabling)
  Sender: FDA-Public Use
  Company Number: ZYD-11-AE-224

PATIENT
  Sex: Male

DRUGS (3)
  1. VASOTEC [Concomitant]
  2. NORVASC [Concomitant]
  3. SIMVASTATIN [Suspect]
     Indication: BLOOD CHOLESTEROL INCREASED
     Dosage: 20MG - DAILY - ORAL
     Route: 048
     Dates: start: 20100101

REACTIONS (1)
  - ANOSMIA [None]
